FAERS Safety Report 20830151 (Version 1)
Quarter: 2022Q2

REPORT INFORMATION
  Report Type: Spontaneous
  Country: US (occurrence: None)
  Receive Date: 20220514
  Receipt Date: 20220514
  Transmission Date: 20220721
  Serious: Yes (Hospitalization)
  Sender: FDA-Public Use
  Company Number: US-ROCHE-3096137

PATIENT
  Age: 74 Year
  Sex: Male
  Weight: 56.2 kg

DRUGS (1)
  1. ESBRIET [Suspect]
     Active Substance: PIRFENIDONE
     Indication: Interstitial lung disease
     Dosage: YES
     Route: 048
     Dates: start: 20210730

REACTIONS (1)
  - Small intestinal obstruction [Unknown]

NARRATIVE: CASE EVENT DATE: 20220508
